FAERS Safety Report 9269812 (Version 1)
Quarter: 2013Q2

REPORT INFORMATION
  Report Type: Report from Study
  Country: CA (occurrence: CA)
  Receive Date: 20130503
  Receipt Date: 20130503
  Transmission Date: 20140414
  Serious: Yes (Hospitalization)
  Sender: FDA-Public Use
  Company Number: CA-JNJFOC-20130311075

PATIENT
  Age: 71 Year
  Sex: Female
  Weight: 62 kg

DRUGS (7)
  1. REMICADE [Suspect]
     Indication: CROHN^S DISEASE
     Route: 042
     Dates: start: 20121211
  2. REMICADE [Suspect]
     Indication: CROHN^S DISEASE
     Route: 042
     Dates: start: 20111201
  3. WARFARIN [Concomitant]
     Route: 065
  4. PRILOSEC [Concomitant]
     Route: 065
  5. COVERSYL [Concomitant]
     Route: 065
  6. VITAMIN B12 [Concomitant]
     Route: 065
  7. PRADAXA [Concomitant]
     Route: 065

REACTIONS (5)
  - Intestinal resection [Unknown]
  - Clostridium difficile infection [Unknown]
  - Arthritis [Unknown]
  - Hypertension [Unknown]
  - Inflammation [Unknown]
